FAERS Safety Report 7961325-6 (Version None)
Quarter: 2011Q4

REPORT INFORMATION
  Report Type: 
  Country: None (occurrence: None)
  Receive Date: 20111207
  Receipt Date: 20111123
  Transmission Date: 20120403
  Serious: Yes (Other)
  Sender: FDA-Public Use
  Company Number: US-SP-2011-07512

PATIENT
  Sex: Female

DRUGS (6)
  1. LISIMOPRIL [Concomitant]
  2. HYDROCHLOROTHIAZIDE [Concomitant]
  3. NEPROSOL [Concomitant]
  4. THERACYS [Suspect]
     Indication: BLADDER CANCER
     Route: 043
     Dates: start: 20110615, end: 20110615
  5. PROCID [Concomitant]
     Indication: BLADDER PAIN
  6. INTERFERON [Suspect]
     Route: 043
     Dates: start: 20110615, end: 20110615

REACTIONS (8)
  - BODY TEMPERATURE INCREASED [None]
  - BACTERIAL TEST POSITIVE [None]
  - BLADDER IRRITATION [None]
  - PAIN [None]
  - URINE ABNORMALITY [None]
  - INCORRECT DOSE ADMINISTERED [None]
  - BLADDER PAIN [None]
  - CULTURE URINE POSITIVE [None]
